FAERS Safety Report 9051418 (Version 1)
Quarter: 2013Q1

REPORT INFORMATION
  Report Type: Spontaneous
  Country: US (occurrence: US)
  Receive Date: 20130206
  Receipt Date: 20130206
  Transmission Date: 20140127
  Serious: No
  Sender: FDA-Public Use
  Company Number: US-ALLERGAN-1207206US

PATIENT
  Age: 69 None
  Sex: Male
  Weight: 106.58 kg

DRUGS (40)
  1. VIAGRA [Suspect]
     Indication: PRODUCT USED FOR UNKNOWN INDICATION
  2. LIPITOR [Suspect]
     Indication: PRODUCT USED FOR UNKNOWN INDICATION
     Dosage: UNK
  3. ZOCOR [Suspect]
     Indication: PRODUCT USED FOR UNKNOWN INDICATION
     Dosage: UNK
  4. XALATAN [Suspect]
     Indication: PRODUCT USED FOR UNKNOWN INDICATION
     Dosage: UNK
  5. TOPROL XL [Suspect]
     Indication: PRODUCT USED FOR UNKNOWN INDICATION
     Dosage: UNK
  6. PROSCAR [Suspect]
     Indication: PRODUCT USED FOR UNKNOWN INDICATION
     Dosage: UNK
  7. REGLAN [Suspect]
     Indication: PRODUCT USED FOR UNKNOWN INDICATION
  8. PLAVIX [Suspect]
     Indication: PRODUCT USED FOR UNKNOWN INDICATION
  9. LUVOX [Suspect]
     Indication: PRODUCT USED FOR UNKNOWN INDICATION
  10. VICODIN [Concomitant]
     Indication: PRODUCT USED FOR UNKNOWN INDICATION
     Dosage: UNK
  11. LOTRIMIN [Suspect]
     Indication: PRODUCT USED FOR UNKNOWN INDICATION
  12. LOSARTAN [Concomitant]
     Indication: CARDIAC DISORDER
     Dosage: UNK
  13. ASPIRIN [Concomitant]
     Indication: CARDIAC DISORDER
     Dosage: 50 MG, UNK
  14. ZETIA [Suspect]
     Indication: PRODUCT USED FOR UNKNOWN INDICATION
  15. ALPRADON [Suspect]
     Indication: PRODUCT USED FOR UNKNOWN INDICATION
  16. PROZAC [Suspect]
     Indication: PRODUCT USED FOR UNKNOWN INDICATION
  17. TRAMADOL [Suspect]
     Indication: PRODUCT USED FOR UNKNOWN INDICATION
  18. COREG [Suspect]
     Indication: PRODUCT USED FOR UNKNOWN INDICATION
  19. GLUCOPHAGE [Suspect]
     Indication: DIABETES MELLITUS
     Dosage: 500 MG, UNK
     Dates: start: 20101018
  20. METFORMIN [Suspect]
     Indication: PRODUCT USED FOR UNKNOWN INDICATION
  21. ADVIL [Suspect]
     Indication: BACK PAIN
     Dosage: 200 MG, PRN
     Dates: end: 201103
  22. CODEINE [Suspect]
     Indication: PRODUCT USED FOR UNKNOWN INDICATION
  23. DIGOXIN [Concomitant]
     Indication: PRODUCT USED FOR UNKNOWN INDICATION
     Dosage: 0.125 MG, 1 PILL ONE DAY AND 2 PILLS THE NEXT DAY - ALTERNATING
     Route: 048
  24. OXYCODONE [Concomitant]
     Indication: BACK PAIN
     Dosage: UNK
  25. ALLOPURINOL [Concomitant]
     Indication: PRODUCT USED FOR UNKNOWN INDICATION
     Dosage: 300 MG, QD
  26. LANTUS [Concomitant]
     Indication: DIABETES MELLITUS
     Dosage: 12 UNITS, QD
  27. POTASSIUM CHLORIDE [Concomitant]
     Indication: PRODUCT USED FOR UNKNOWN INDICATION
     Dosage: 20 MEQ, UNK
  28. FUROSEMIDE [Concomitant]
     Indication: DIURETIC THERAPY
     Dosage: UNK
  29. METOPROLOL TARTRATE [Concomitant]
     Indication: PRODUCT USED FOR UNKNOWN INDICATION
     Dosage: 25 MG, BID
  30. PRAVASTATIN [Concomitant]
     Indication: PRODUCT USED FOR UNKNOWN INDICATION
     Dosage: UNK
  31. ISTALOL [Concomitant]
     Indication: INTRAOCULAR PRESSURE TEST ABNORMAL
     Dosage: 1 GTT, QID
  32. PILOCARPIN [Concomitant]
     Indication: INTRAOCULAR PRESSURE INCREASED
     Dosage: UNK
  33. LUMIGAN [Concomitant]
     Indication: INTRAOCULAR PRESSURE TEST ABNORMAL
     Dosage: 1 GTT, QD
  34. THERA TEARS [Concomitant]
     Indication: PRODUCT USED FOR UNKNOWN INDICATION
     Dosage: UNK
  35. DIAZEPAM [Concomitant]
     Indication: PRODUCT USED FOR UNKNOWN INDICATION
     Dosage: 5 MG, UNK
  36. BILBERRY [Concomitant]
     Indication: PRODUCT USED FOR UNKNOWN INDICATION
  37. CLOZAPINE [Concomitant]
     Indication: PRODUCT USED FOR UNKNOWN INDICATION
     Dosage: UNK
  38. FISH OIL [Concomitant]
     Indication: PRODUCT USED FOR UNKNOWN INDICATION
     Dosage: UNK
  39. FOLIC ACID [Concomitant]
     Indication: PRODUCT USED FOR UNKNOWN INDICATION
     Dosage: UNK
  40. RESTASIS [Suspect]
     Indication: PRODUCT USED FOR UNKNOWN INDICATION

REACTIONS (12)
  - Dyspnoea [Unknown]
  - Dyspnoea [Unknown]
  - Blood glucose increased [Unknown]
  - Myalgia [Unknown]
  - Asthenia [Unknown]
  - Back pain [Unknown]
  - Sleep disorder [Unknown]
  - Abasia [Unknown]
  - Vomiting [Unknown]
  - Skin irritation [Unknown]
  - Drug hypersensitivity [Unknown]
  - Nausea [Unknown]
